FAERS Safety Report 20699849 (Version 2)
Quarter: 2022Q2

REPORT INFORMATION
  Report Type: Spontaneous
  Country: SK (occurrence: SK)
  Receive Date: 20220412
  Receipt Date: 20220419
  Transmission Date: 20220720
  Serious: Yes (Death, Hospitalization, Other)
  Sender: FDA-Public Use
  Company Number: SK-ASTELLAS-2022US013390

PATIENT
  Sex: Male

DRUGS (1)
  1. ENZALUTAMIDE [Suspect]
     Active Substance: ENZALUTAMIDE
     Indication: Hormone-refractory prostate cancer
     Dosage: UNK UNK, UNKNOWN FREQ.
     Route: 065
     Dates: start: 202009

REACTIONS (4)
  - Malignant neoplasm progression [Fatal]
  - Pancreatitis acute [Unknown]
  - Dyspepsia [Unknown]
  - Weight decreased [Unknown]

NARRATIVE: CASE EVENT DATE: 20211001
